FAERS Safety Report 8328401-X (Version None)
Quarter: 2012Q2

REPORT INFORMATION
  Report Type: 
  Country: None (occurrence: None)
  Receive Date: 20120502
  Receipt Date: 20100706
  Transmission Date: 20120825
  Serious: No
  Sender: FDA-Public Use
  Company Number: US-TEVA-2010003618

PATIENT
  Sex: Male
  Weight: 81.72 kg

DRUGS (6)
  1. NUVIGIL [Suspect]
     Indication: SOMNOLENCE
     Dosage: 25 MILLIGRAM;
     Route: 048
     Dates: start: 20090101
  2. ATENOLOL [Concomitant]
  3. PAROXETINE [Concomitant]
  4. ALLEGRA [Concomitant]
  5. TRAZODONE HCL [Concomitant]
  6. CALCIUM SUPPLEMENTS [Concomitant]

REACTIONS (3)
  - EYE SWELLING [None]
  - HEADACHE [None]
  - DRY EYE [None]
